FAERS Safety Report 6633113 (Version 13)
Quarter: 2014Q2

REPORT INFORMATION
  Report Type: Spontaneous
  Country: US (occurrence: US)
  Receive Date: 20080506
  Receipt Date: 20140627
  Transmission Date: 20141212
  Serious: Yes (Other)
  Sender: FDA-Public Use
  Company Number: PHEH2008US04221

PATIENT
  Age: 37 Year
  Sex: Female

DRUGS (8)
  1. ZOMETA [Suspect]
     Indication: NEOPLASM MALIGNANT
     Dosage: 4 MG
     Route: 042
     Dates: start: 20030812, end: 20061024
  2. CHEMOTHERAPEUTICS NOS [Concomitant]
     Dosage: UNK UKN, UNK
  3. DEXAMETHASONE [Concomitant]
     Dosage: 10 MG, UNK
     Route: 042
  4. TAXOL [Concomitant]
     Dosage: UNK UKN, UNK
     Dates: start: 200308
  5. HERCEPTIN ^GENENTECH^ [Concomitant]
     Dosage: UNK UKN, UNK
     Dates: start: 200308
  6. PAXIL [Concomitant]
     Dosage: UNK UKN, UNK
  7. PROTONIX ^PHARMACIA^ [Concomitant]
     Dosage: UNK UKN, UNK
  8. TOPROL XL [Concomitant]
     Dosage: UNK UKN, UNK

REACTIONS (49)
  - Osteonecrosis of jaw [Unknown]
  - Diabetes mellitus [Unknown]
  - General physical health deterioration [Unknown]
  - Pain [Unknown]
  - Mastication disorder [Unknown]
  - Anxiety [Unknown]
  - Decreased interest [Unknown]
  - Scar [Unknown]
  - Injury [Unknown]
  - Sensitivity of teeth [Unknown]
  - Pain in jaw [Unknown]
  - Periodontitis [Unknown]
  - Goitre [Unknown]
  - Spinal disorder [Unknown]
  - Vision blurred [Unknown]
  - Haemangioma [Unknown]
  - Lymphadenopathy [Unknown]
  - Basedow^s disease [Unknown]
  - Diverticulum intestinal [Unknown]
  - Fatigue [Unknown]
  - Glossodynia [Unknown]
  - Back pain [Unknown]
  - Asthma [Unknown]
  - Vulvovaginal mycotic infection [Unknown]
  - Pneumonia [Recovered/Resolved]
  - Pyrexia [Recovered/Resolved]
  - Cough [Recovered/Resolved]
  - Hepatic steatosis [Unknown]
  - Exostosis [Unknown]
  - Soft tissue disorder [Unknown]
  - Osteoarthritis [Unknown]
  - Osteosclerosis [Unknown]
  - Adnexa uteri mass [Unknown]
  - Metastases to spine [Unknown]
  - Otitis media [Unknown]
  - Otitis externa [Unknown]
  - Pharyngitis [Unknown]
  - Ear pain [Unknown]
  - Oropharyngeal pain [Unknown]
  - Odynophagia [Unknown]
  - Pharyngeal erythema [Unknown]
  - Chills [Unknown]
  - Sinus congestion [Unknown]
  - Adrenal cyst [Unknown]
  - Adrenal disorder [Unknown]
  - Ovarian cyst [Unknown]
  - Spinal osteoarthritis [Unknown]
  - Depression [Unknown]
  - Dyspepsia [Unknown]
